FAERS Safety Report 24964801 (Version 3)
Quarter: 2025Q2

REPORT INFORMATION
  Report Type: Spontaneous
  Country: JP (occurrence: JP)
  Receive Date: 20250213
  Receipt Date: 20250627
  Transmission Date: 20250716
  Serious: Yes (Hospitalization, Other)
  Sender: ASTELLAS
  Company Number: JP-ASTELLAS-2024JP005855

PATIENT
  Age: 77 Year
  Sex: Male
  Weight: 65 kg

DRUGS (10)
  1. PADCEV [Suspect]
     Active Substance: ENFORTUMAB VEDOTIN-EJFV
     Indication: Metastatic carcinoma of the bladder
     Dosage: 80MG, ADMINISTRATION FOR THREE WEEKS AND INTERRUPTION FOR A WEEK
     Route: 042
     Dates: start: 20240618, end: 20240716
  2. PADCEV [Suspect]
     Active Substance: ENFORTUMAB VEDOTIN-EJFV
     Dosage: ADMINISTRATION FOR THREE WEEKS AND INTERRUPTION FOR A WEEK
     Route: 042
     Dates: start: 20240716, end: 20240723
  3. OPDIVO [Suspect]
     Active Substance: NIVOLUMAB
     Indication: Metastatic carcinoma of the bladder
     Route: 065
     Dates: start: 20231212, end: 20240604
  4. Amlodipine Tablets 2.5 [Concomitant]
     Indication: Hypertension
     Dosage: 2.5/DAY
     Route: 048
  5. Amlodipine Tablets 5.0 [Concomitant]
     Indication: Hypertension
     Dosage: 5.0/DAY
     Route: 048
  6. Rosuvastatin Tablets 5 [Concomitant]
     Indication: Hyperlipidaemia
     Dosage: 5/DAY
     Route: 048
  7. PARMODIA TABLETS 0.1 [Concomitant]
     Indication: Hyperlipidaemia
     Dosage: 0.2/DAY
     Route: 048
  8. CARVEDILOL TABLETS 10 [Concomitant]
     Indication: Hypertension
     Dosage: 10/DAY
     Route: 048
  9. Benzbromarone Tablets 50 [Concomitant]
     Indication: Hyperuricaemia
     Dosage: 50/DAY
     Route: 048
  10. CLOPIDOGREL TABLETS 75 [Concomitant]
     Indication: Cerebral infarction
     Dosage: 75/DAY
     Route: 048

REACTIONS (3)
  - Toxic skin eruption [Recovering/Resolving]
  - Enterocolitis [Recovered/Resolved]
  - Renal disorder [Recovering/Resolving]

NARRATIVE: CASE EVENT DATE: 20240625
